FAERS Safety Report 4727008-0 (Version None)
Quarter: 2005Q3

REPORT INFORMATION
  Report Type: 
  Country: None (occurrence: None)
  Receive Date: 20050726
  Receipt Date: 20050713
  Transmission Date: 20060218
  Serious: Yes (Hospitalization)
  Sender: FDA-Public Use
  Company Number: 178477

PATIENT
  Age: 59 Year
  Sex: Female
  Weight: 73.4827 kg

DRUGS (16)
  1. AVONEX [Suspect]
     Indication: MULTIPLE SCLEROSIS
     Dosage: 30 UG; QW; IM
     Route: 030
     Dates: start: 19970801
  2. SYNTHROID [Concomitant]
  3. VIOXX [Concomitant]
  4. BACLOFEN [Concomitant]
  5. ROBAXIN [Concomitant]
  6. POTASSIUM CHLORIDE [Concomitant]
  7. VITAMIN B-12 [Concomitant]
  8. TEGRETOL [Concomitant]
  9. LORTAB [Concomitant]
  10. DIURAL [Concomitant]
  11. HYDROCHLOROTHIAZIDE [Concomitant]
  12. ADVAIR DISKUS 100/50 [Concomitant]
  13. THEOPHYLLINE [Concomitant]
  14. MEDICATION (NOS) [Concomitant]
  15. MAGNESIUM OXIDE [Concomitant]
  16. NEBULIZER TREATMENTS (NOS) [Concomitant]

REACTIONS (10)
  - ANIMAL BITE [None]
  - ATRIAL FIBRILLATION [None]
  - CELLULITIS STAPHYLOCOCCAL [None]
  - DEHYDRATION [None]
  - HAEMOGLOBIN DECREASED [None]
  - HEART RATE DECREASED [None]
  - HYPOTENSION [None]
  - MULTIPLE SCLEROSIS RELAPSE [None]
  - SLEEP APNOEA SYNDROME [None]
  - SYNCOPE [None]
